FAERS Safety Report 23657277 (Version 1)
Quarter: 2024Q1

REPORT INFORMATION
  Report Type: Spontaneous
  Country: HR (occurrence: HR)
  Receive Date: 20240321
  Receipt Date: 20240321
  Transmission Date: 20240410
  Serious: Yes (Hospitalization, Other)
  Sender: FDA-Public Use
  Company Number: HR-BoehringerIngelheim-2024-BI-011513

PATIENT
  Age: 87 Year
  Sex: Male

DRUGS (5)
  1. SIMVASTATIN [Suspect]
     Active Substance: SIMVASTATIN
     Indication: Dyslipidaemia
     Dosage: UNK
     Route: 065
  2. DABIGATRAN [Suspect]
     Active Substance: DABIGATRAN
     Indication: Atrial fibrillation
     Dosage: 110 MILLIGRAM, Q12H
     Route: 048
  3. DABIGATRAN [Suspect]
     Active Substance: DABIGATRAN
     Indication: Cerebrovascular accident
  4. METILDIGOXIN [Suspect]
     Active Substance: METILDIGOXIN
     Indication: Atrial fibrillation
     Dosage: UNK
     Route: 065
  5. INVESTIGATIONAL PRODUCT [Concomitant]
     Active Substance: INVESTIGATIONAL PRODUCT
     Indication: Prostate cancer
     Dosage: UNK
     Route: 065

REACTIONS (6)
  - Cerebrovascular accident [Not Recovered/Not Resolved]
  - Drug ineffective [Unknown]
  - Drug interaction [Recovering/Resolving]
  - Anticoagulation drug level decreased [Recovering/Resolving]
  - Anticoagulation drug level below therapeutic [Unknown]
  - Drug interaction [Unknown]
